FAERS Safety Report 11046182 (Version 1)
Quarter: 2015Q2

REPORT INFORMATION
  Report Type: Report from Study
  Country: KR (occurrence: KR)
  Receive Date: 20150418
  Receipt Date: 20150418
  Transmission Date: 20150821
  Serious: Yes (Hospitalization)
  Sender: FDA-Public Use
  Company Number: KR-INDICUS PHARMA-000328

PATIENT
  Age: 73 Year
  Sex: Female

DRUGS (9)
  1. AMLODIPINE [Concomitant]
     Active Substance: AMLODIPINE BESYLATE
  2. METFORMIN [Suspect]
     Active Substance: METFORMIN HYDROCHLORIDE
     Indication: DIABETES MELLITUS
  3. HYDROCHLOROTHIAZIDE/TELMISARTAN [Concomitant]
     Dosage: DOSE: 80/12.5 MG
  4. PANTOPRAZOLE [Concomitant]
     Active Substance: PANTOPRAZOLE SODIUM
  5. BISOPROLOL [Concomitant]
     Active Substance: BISOPROLOL
  6. ALPRAZOLAM. [Concomitant]
     Active Substance: ALPRAZOLAM
  7. TRIMETAZIDINE [Concomitant]
     Active Substance: TRIMETAZIDINE
  8. NIFEDIPINE. [Concomitant]
     Active Substance: NIFEDIPINE
  9. GLIMEPIRIDE. [Concomitant]
     Active Substance: GLIMEPIRIDE

REACTIONS (9)
  - Lactic acidosis [Recovering/Resolving]
  - Acute kidney injury [Recovering/Resolving]
  - Diarrhoea [Unknown]
  - Leukocytosis [Unknown]
  - Continuous haemodiafiltration [None]
  - Anaemia [Unknown]
  - Dehydration [Recovering/Resolving]
  - Blood pressure decreased [None]
  - Decreased appetite [Unknown]
